FAERS Safety Report 16767822 (Version 1)
Quarter: 2019Q3

REPORT INFORMATION
  Report Type: Report from Study
  Country: US (occurrence: US)
  Receive Date: 20190903
  Receipt Date: 20190903
  Transmission Date: 20191005
  Serious: Yes (Death)
  Sender: FDA-Public Use
  Company Number: US-PFIZER INC-2019281925

PATIENT
  Age: 64 Year
  Sex: Female

DRUGS (1)
  1. IBRANCE [Suspect]
     Active Substance: PALBOCICLIB
     Indication: BREAST CANCER FEMALE
     Dosage: 125 MG, CYCLIC (21 DAYS,THEN 7 DAYS OFF, DAILY)
     Route: 048
     Dates: start: 20190531, end: 201908

REACTIONS (6)
  - Oral candidiasis [Recovering/Resolving]
  - Fatigue [Recovering/Resolving]
  - Decreased appetite [Not Recovered/Not Resolved]
  - Herpes zoster [Unknown]
  - Rash pustular [Recovering/Resolving]
  - Death [Fatal]

NARRATIVE: CASE EVENT DATE: 2019
